FAERS Safety Report 12947072 (Version 2)
Quarter: 2017Q1

REPORT INFORMATION
  Report Type: Spontaneous
  Country: PT (occurrence: PT)
  Receive Date: 20161116
  Receipt Date: 20170127
  Transmission Date: 20170428
  Serious: Yes (Death, Hospitalization)
  Sender: FDA-Public Use
  Company Number: PT-B.I. PHARMACEUTICALS,INC./RIDGEFIELD-2016-BI-075095

PATIENT
  Age: 67 Year
  Sex: Female

DRUGS (1)
  1. PRADAXA [Suspect]
     Active Substance: DABIGATRAN ETEXILATE MESYLATE
     Indication: ATRIAL FIBRILLATION
     Route: 065
     Dates: end: 20161104

REACTIONS (9)
  - International normalised ratio abnormal [Unknown]
  - Diarrhoea [Not Recovered/Not Resolved]
  - Haemorrhage [Not Recovered/Not Resolved]
  - Melaena [Not Recovered/Not Resolved]
  - Haematoma [Not Recovered/Not Resolved]
  - Death [Fatal]
  - Haemoglobin decreased [Not Recovered/Not Resolved]
  - Blood creatinine abnormal [Unknown]
  - Renal impairment [Not Recovered/Not Resolved]

NARRATIVE: CASE EVENT DATE: 201611
